FAERS Safety Report 5584043-0 (Version None)
Quarter: 2008Q1

REPORT INFORMATION
  Report Type: 
  Country: None (occurrence: None)
  Receive Date: 20080108
  Receipt Date: 20071228
  Transmission Date: 20080703
  Serious: Yes (Death)
  Sender: FDA-Public Use
  Company Number: ES-ROCHE-538920

PATIENT
  Age: 49 Year
  Sex: Male

DRUGS (6)
  1. CELLCEPT [Suspect]
     Indication: RENAL TRANSPLANT
     Route: 048
     Dates: start: 20070927, end: 20070929
  2. TOBRADISTIN [Suspect]
     Indication: RENAL TRANSPLANT
     Dosage: STRENGTH: 100MG/2ML. FORM SYRINGE.
     Route: 042
     Dates: start: 20070927, end: 20070927
  3. PROGRAF [Suspect]
     Indication: RENAL TRANSPLANT
     Route: 048
     Dates: start: 20070927, end: 20070929
  4. GOBEMICINA [Suspect]
     Indication: RENAL TRANSPLANT
     Route: 042
     Dates: start: 20070927, end: 20070927
  5. URBASON [Suspect]
     Indication: RENAL TRANSPLANT
     Route: 042
     Dates: start: 20070927, end: 20070929
  6. SIMULECT [Suspect]
     Indication: RENAL TRANSPLANT
     Route: 042
     Dates: start: 20070927, end: 20070927

REACTIONS (7)
  - ABDOMINAL WALL HAEMATOMA [None]
  - ACUTE RESPIRATORY DISTRESS SYNDROME [None]
  - CHOLECYSTITIS INFECTIVE [None]
  - GRAFT THROMBOSIS [None]
  - PANCREATIC ABSCESS [None]
  - PANCREATITIS NECROTISING [None]
  - RENAL ARTERY STENOSIS [None]
